FAERS Safety Report 6518243-X (Version None)
Quarter: 2009Q4

REPORT INFORMATION
  Report Type: 
  Country: None (occurrence: None)
  Receive Date: 20091223
  Receipt Date: 20091223
  Transmission Date: 20100525
  Serious: Yes (Other)
  Sender: FDA-Public Use
  Company Number: None

PATIENT
  Age: 23 Year
  Sex: Female
  Weight: 70.3075 kg

DRUGS (1)
  1. ZICAM GEL ZICAM [Suspect]
     Indication: NASOPHARYNGITIS
     Dosage: GEL FEW TIMES A DAY NASAL
     Route: 045
     Dates: start: 20030801, end: 20031001

REACTIONS (2)
  - HYPOGEUSIA [None]
  - HYPOSMIA [None]
